FAERS Safety Report 20519107 (Version 1)
Quarter: 2022Q1

REPORT INFORMATION
  Report Type: Spontaneous
  Country: US (occurrence: US)
  Receive Date: 20220225
  Receipt Date: 20220225
  Transmission Date: 20220423
  Serious: No
  Sender: FDA-Public Use
  Company Number: US-GW PHARMA-202202USGW00835

PATIENT
  Sex: Male
  Weight: 111.57 kg

DRUGS (2)
  1. EPIDIOLEX [Suspect]
     Active Substance: CANNABIDIOL
     Indication: Epilepsy
     Dosage: 5.02 MG/KG/DAY, 280 MILLIGRAM, BID
     Route: 048
     Dates: start: 20220126, end: 20220202
  2. EPIDIOLEX [Suspect]
     Active Substance: CANNABIDIOL
     Indication: Epilepsy
     Dosage: 10.22 MG/KG/DAY, 570 MILLIGRAM, BID
     Route: 048
     Dates: start: 20220203

REACTIONS (3)
  - Weight increased [Unknown]
  - Seizure [Not Recovered/Not Resolved]
  - Product use in unapproved indication [Unknown]

NARRATIVE: CASE EVENT DATE: 20220101
